FAERS Safety Report 16462414 (Version 2)
Quarter: 2019Q2

REPORT INFORMATION
  Report Type: Spontaneous
  Country: MY (occurrence: MY)
  Receive Date: 20190621
  Receipt Date: 20190626
  Transmission Date: 20190711
  Serious: Yes (Hospitalization)
  Sender: FDA-Public Use
  Company Number: MY-PFIZER INC-2019263749

PATIENT
  Age: 8 Month
  Sex: Male

DRUGS (1)
  1. VANCOMYCIN HCL [Suspect]
     Active Substance: VANCOMYCIN HYDROCHLORIDE
     Indication: ANTI-INFECTIVE THERAPY
     Dosage: 194 MG, 1X/DAY
     Route: 042

REACTIONS (3)
  - Erythema [Recovered/Resolved]
  - Discomfort [Recovered/Resolved]
  - Ear swelling [Recovered/Resolved]
